FAERS Safety Report 7213216-6 (Version None)
Quarter: 2011Q1

REPORT INFORMATION
  Report Type: 
  Country: None (occurrence: None)
  Receive Date: 20110106
  Receipt Date: 20110105
  Transmission Date: 20110831
  Serious: Yes (Other)
  Sender: FDA-Public Use
  Company Number: NL-TEVA-261013ISR

PATIENT
  Age: 77 Year
  Sex: Female

DRUGS (8)
  1. MICONAZOLE [Suspect]
     Indication: INTERTRIGO
     Dosage: 20MG/G
  2. METFORMIN HCL [Concomitant]
  3. SIMVASTATIN [Concomitant]
  4. CARVEDILOL [Concomitant]
  5. GLIMEPIRIDE [Concomitant]
  6. LOSARTAN POTASSIUM [Concomitant]
  7. FUROSEMIDE [Concomitant]
  8. PHENPROCOUMON [Interacting]

REACTIONS (2)
  - DRUG INTERACTION [None]
  - COAGULATION TEST ABNORMAL [None]
